FAERS Safety Report 10234695 (Version 1)
Quarter: 2014Q2

REPORT INFORMATION
  Report Type: Report from Study
  Country: US (occurrence: US)
  Receive Date: 20140613
  Receipt Date: 20140613
  Transmission Date: 20141212
  Serious: Yes (Other)
  Sender: FDA-Public Use
  Company Number: US-ROCHE-1416579

PATIENT
  Age: 18 Year
  Sex: Male

DRUGS (1)
  1. TOCILIZUMAB [Suspect]
     Indication: JUVENILE IDIOPATHIC ARTHRITIS
     Dosage: LAST DOSE PRIOR TO SAE: 17/DEC/2013
     Route: 042

REACTIONS (1)
  - Synovitis [Not Recovered/Not Resolved]
